FAERS Safety Report 18645454 (Version 1)
Quarter: 2020Q4

REPORT INFORMATION
  Report Type: Spontaneous
  Country: FR (occurrence: FR)
  Receive Date: 20201221
  Receipt Date: 20201221
  Transmission Date: 20210114
  Serious: Yes (Hospitalization)
  Sender: FDA-Public Use
  Company Number: FR-ALLERGAN-2049126US

PATIENT
  Sex: Male
  Weight: 62 kg

DRUGS (7)
  1. CHIBRO CADRON [Suspect]
     Active Substance: DEXAMETHASONE SODIUM PHOSPHATE\NEOMYCIN SULFATE
     Indication: CHORIORETINITIS
     Dosage: 6 GTT, QD
     Route: 047
     Dates: start: 20201027, end: 20201205
  2. MEROPENEM ANHYDRE [Suspect]
     Active Substance: MEROPENEM
     Indication: CHORIORETINITIS
     Dosage: 1 G, QD
     Route: 041
     Dates: start: 20201104, end: 20201205
  3. IMIPENEM ANHYDRE [Suspect]
     Active Substance: IMIPENEM
     Indication: ENDOPHTHALMITIS
     Dosage: 500 MG, QD
     Route: 041
     Dates: start: 20201027, end: 20201104
  4. LEVOFLOXACINE [Suspect]
     Active Substance: LEVOFLOXACIN
     Indication: CHORIORETINITIS
     Dosage: 250 MG, QD
     Route: 041
     Dates: start: 20201027, end: 20201205
  5. ARTELAC [ACETYLSALICYLIC ACID] [Suspect]
     Active Substance: ASPIRIN
     Indication: CHORIORETINITIS
     Dosage: 3 GTT, QD
     Route: 047
     Dates: start: 20201027, end: 20201205
  6. CILASTATINE ANHYDRE [Suspect]
     Active Substance: CILASTATIN
     Indication: ENDOPHTHALMITIS
     Dosage: 500 MG, QD
     Route: 041
     Dates: start: 20201027, end: 20201104
  7. ATROPINE UNK [Suspect]
     Active Substance: ATROPINE SULFATE
     Indication: CHORIORETINITIS
     Dosage: 2 GTT, QD
     Route: 047

REACTIONS (1)
  - Toxic epidermal necrolysis [Not Recovered/Not Resolved]

NARRATIVE: CASE EVENT DATE: 20201127
